FAERS Safety Report 5211373-4 (Version None)
Quarter: 2007Q1

REPORT INFORMATION
  Report Type: 
  Country: None (occurrence: None)
  Receive Date: 20070112
  Receipt Date: 20070105
  Transmission Date: 20070707
  Serious: Yes (Other)
  Sender: FDA-Public Use
  Company Number: MEDI-0005266

PATIENT
  Age: 63 Year
  Sex: Male

DRUGS (7)
  1. ETHYOL [Suspect]
     Indication: ADENOCARCINOMA
     Dosage: SEE IMAGE
     Route: 058
     Dates: start: 20061128, end: 20060101
  2. ETHYOL [Suspect]
     Indication: ADENOCARCINOMA
     Dosage: SEE IMAGE
     Route: 058
     Dates: start: 20060101, end: 20061229
  3. TRIAMTERENE AND HYDROCHLOROTHIAZIDE (HYDROCHLOROTHIAZIDE, TRIAMTERENE) [Concomitant]
  4. LORAZEPAM [Concomitant]
  5. ACETAMINOPHEN AND OXYCODONE HCL [Concomitant]
  6. ALLEGRA [Concomitant]
  7. KYTRIN (GRANISETRON) [Concomitant]

REACTIONS (6)
  - DIARRHOEA [None]
  - MALAISE [None]
  - PRURITUS [None]
  - PYREXIA [None]
  - RASH GENERALISED [None]
  - VOMITING [None]
